FAERS Safety Report 17034826 (Version 2)
Quarter: 2021Q2

REPORT INFORMATION
  Report Type: Report from Study
  Country: CA (occurrence: CA)
  Receive Date: 20191115
  Receipt Date: 20210623
  Transmission Date: 20210716
  Serious: Yes (Other)
  Sender: FDA-Public Use
  Company Number: CA-ORION CORPORATION ORION PHARMA-TREX2019-5412

PATIENT
  Age: 37 Year
  Sex: Female

DRUGS (11)
  1. COSENTYX [Suspect]
     Active Substance: SECUKINUMAB
     Indication: ANKYLOSING SPONDYLITIS
     Route: 065
  2. COSENTYX [Suspect]
     Active Substance: SECUKINUMAB
     Route: 058
  3. ENBREL [Concomitant]
     Active Substance: ETANERCEPT
     Route: 065
  4. METHOTREXATE (TRADE NAME UNKNOWN) [Concomitant]
     Active Substance: METHOTREXATE
     Indication: PRODUCT USED FOR UNKNOWN INDICATION
     Route: 065
  5. KETOROLAC [Concomitant]
     Active Substance: KETOROLAC TROMETHAMINE
     Route: 065
  6. NAPROXEN. [Concomitant]
     Active Substance: NAPROXEN
     Route: 065
  7. FLUNARIZINE [Concomitant]
     Active Substance: FLUNARIZINE
     Route: 065
  8. COSENTYX [Suspect]
     Active Substance: SECUKINUMAB
     Route: 058
  9. NABILONE [Concomitant]
     Active Substance: NABILONE
     Route: 065
  10. TRAMACET [Concomitant]
     Active Substance: ACETAMINOPHEN\TRAMADOL
     Route: 065
  11. HUMIRA [Concomitant]
     Active Substance: ADALIMUMAB
     Route: 065

REACTIONS (13)
  - Joint swelling [Recovering/Resolving]
  - Erythema [Recovering/Resolving]
  - Drug ineffective [Recovering/Resolving]
  - Pain [Recovering/Resolving]
  - Diarrhoea [Recovering/Resolving]
  - Therapeutic response decreased [Recovering/Resolving]
  - Nasopharyngitis [Recovering/Resolving]
  - Therapeutic response shortened [Recovering/Resolving]
  - Incorrect dose administered [Recovering/Resolving]
  - Swelling [Recovering/Resolving]
  - Tenderness [Recovering/Resolving]
  - Product administration error [Recovering/Resolving]
  - Haematemesis [Recovering/Resolving]
